FAERS Safety Report 25968045 (Version 1)
Quarter: 2025Q4

REPORT INFORMATION
  Report Type: Spontaneous
  Country: US (occurrence: US)
  Receive Date: 20251028
  Receipt Date: 20251028
  Transmission Date: 20260118
  Serious: No
  Sender: CELLTRION
  Company Number: US-CELLTRION INC.-2024US031065

PATIENT

DRUGS (9)
  1. INFLIXIMAB [Suspect]
     Active Substance: INFLIXIMAB
     Indication: Colitis ulcerative
     Dosage: 10 MG/KG (1000 MG) PRIOR HOSPITALIZATION 1 MONTH BEFORE THIS ADMISSIO
  2. INFLIXIMAB [Suspect]
     Active Substance: INFLIXIMAB
     Dosage: EXTRA DOSE OF IFX (1000 MG) ON HOSPITAL DAY (HD)2
  3. UPADACITINIB [Suspect]
     Active Substance: UPADACITINIB
     Indication: Colitis ulcerative
     Dosage: 45 MG, DAILY (INDUCTION)
  4. UPADACITINIB [Suspect]
     Active Substance: UPADACITINIB
     Dosage: 30 MG (MAINTENANCE DOSE)
  5. MESALAMINE [Concomitant]
     Active Substance: MESALAMINE
  6. AMOXICILLIN [Concomitant]
     Active Substance: AMOXICILLIN
     Route: 048
  7. METRONIDAZOLE [Concomitant]
     Active Substance: METRONIDAZOLE
  8. VANCOMYCIN [Concomitant]
     Active Substance: VANCOMYCIN
  9. DOXYCYCLINE [Concomitant]
     Active Substance: DOXYCYCLINE

REACTIONS (2)
  - Therapy non-responder [Unknown]
  - Intentional product use issue [Unknown]
